FAERS Safety Report 4431199-9 (Version None)
Quarter: 2004Q3

REPORT INFORMATION
  Report Type: 
  Country: None (occurrence: None)
  Receive Date: 20040824
  Receipt Date: 20040810
  Transmission Date: 20050211
  Serious: Yes (Hospitalization)
  Sender: FDA-Public Use
  Company Number: FR-JNJFOC-20040803509

PATIENT
  Age: 79 Year
  Sex: Female

DRUGS (5)
  1. RISPERDAL [Suspect]
     Route: 049
     Dates: end: 20040424
  2. RISPERDAL [Suspect]
     Indication: DRUG USE FOR UNKNOWN INDICATION
     Route: 049
     Dates: end: 20040424
  3. IMOVANE [Concomitant]
     Route: 065
  4. RYTHMOL [Concomitant]
     Route: 065
     Dates: start: 19840101, end: 20040424
  5. LEVOTHYROXINE SODIUM [Concomitant]
     Route: 065

REACTIONS (5)
  - DEHYDRATION [None]
  - EXTRAPYRAMIDAL DISORDER [None]
  - FALL [None]
  - ORTHOSTATIC HYPOTENSION [None]
  - RHABDOMYOLYSIS [None]
